FAERS Safety Report 6952828-1 (Version None)
Quarter: 2010Q3

REPORT INFORMATION
  Report Type: 
  Country: None (occurrence: None)
  Receive Date: 20100829
  Receipt Date: 20100521
  Transmission Date: 20110219
  Serious: No
  Sender: FDA-Public Use
  Company Number: US-ABBOTT-10P-163-0646336-00

PATIENT
  Sex: Female

DRUGS (1)
  1. NIASPAN [Suspect]
     Indication: HIGH DENSITY LIPOPROTEIN DECREASED
     Dosage: 1000MG X 1/2 TABLET = 500MG AT BEDTIME
     Route: 048
     Dates: start: 20100518

REACTIONS (1)
  - WRONG TECHNIQUE IN DRUG USAGE PROCESS [None]
